FAERS Safety Report 10195993 (Version 1)
Quarter: 2014Q2

REPORT INFORMATION
  Report Type: Spontaneous
  Country: CA (occurrence: None)
  Receive Date: 20140522
  Receipt Date: 20140522
  Transmission Date: 20141212
  Serious: Yes (Hospitalization)
  Sender: FDA-Public Use
  Company Number: 2341933

PATIENT
  Age: 68 Year
  Sex: Female

DRUGS (6)
  1. METHOTREXATE [Suspect]
     Indication: CROHN^S DISEASE
     Route: 030
  2. TRIMETHOPRIM SULFAMETHOXAZOLE [Suspect]
     Indication: PNEUMOCYSTIS JIROVECII PNEUMONIA
  3. PREDNISONE [Concomitant]
  4. FOLIC ACID [Concomitant]
  5. ALENDRONATE [Concomitant]
  6. VITAMIN D /00107901/ [Concomitant]

REACTIONS (13)
  - Febrile neutropenia [None]
  - Mucosal inflammation [None]
  - Pancytopenia [None]
  - Drug interaction [None]
  - Abdominal pain [None]
  - Diarrhoea [None]
  - Nausea [None]
  - Vomiting [None]
  - Stomatitis [None]
  - Stomatitis [None]
  - Blood creatinine increased [None]
  - Oral pain [None]
  - Herpes simplex [None]
